FAERS Safety Report 6927155-9 (Version None)
Quarter: 2010Q3

REPORT INFORMATION
  Report Type: 
  Country: None (occurrence: None)
  Receive Date: 20100816
  Receipt Date: 20100805
  Transmission Date: 20110219
  Serious: No
  Sender: FDA-Public Use
  Company Number: US-ABBOTT-10P-163-0662246-00

PATIENT
  Sex: Female
  Weight: 54.48 kg

DRUGS (4)
  1. SIMCOR [Suspect]
     Indication: HIGH DENSITY LIPOPROTEIN DECREASED
     Dates: start: 20100603
  2. CALCIUM [Concomitant]
     Indication: OSTEOPENIA
  3. CENTRUM [Concomitant]
     Indication: VITAMIN SUPPLEMENTATION
  4. GINKO BILOBA [Concomitant]
     Indication: VITAMIN SUPPLEMENTATION

REACTIONS (5)
  - DYSPEPSIA [None]
  - FLANK PAIN [None]
  - HOT FLUSH [None]
  - MIDDLE INSOMNIA [None]
  - PAIN IN EXTREMITY [None]
